FAERS Safety Report 8121288-X (Version None)
Quarter: 2012Q1

REPORT INFORMATION
  Report Type: 
  Country: None (occurrence: None)
  Receive Date: 20120208
  Receipt Date: 20120201
  Transmission Date: 20120608
  Serious: Yes (Hospitalization)
  Sender: FDA-Public Use
  Company Number: CY-AMGEN-CYPSP2011061572

PATIENT
  Age: 58 Year
  Sex: Female
  Weight: 55 kg

DRUGS (8)
  1. CALCIUM CARBONATE [Concomitant]
     Dosage: 1 G, TID
  2. OMEPRAZOLE [Concomitant]
     Dosage: UNK
  3. EPREX [Concomitant]
     Dosage: 4000 IU, QD
  4. MICARDIS [Concomitant]
     Dosage: 80 MG, BID
  5. LEVOTHYROXINE SODIUM [Concomitant]
     Dosage: 100 MUG, UNK
  6. ONE ALPHA [Concomitant]
     Dosage: 1 MG, UNK
  7. FOSRENOL [Concomitant]
     Dosage: 500 MG, TID
  8. CINACALCET HYDROCHLORIDE [Suspect]
     Indication: HYPERPARATHYROIDISM SECONDARY
     Dosage: 30 MG, QD
     Dates: start: 20111027

REACTIONS (1)
  - GRAND MAL CONVULSION [None]
